FAERS Safety Report 6496010-3 (Version None)
Quarter: 2009Q4

REPORT INFORMATION
  Report Type: 
  Country: None (occurrence: None)
  Receive Date: 20091214
  Receipt Date: 20091016
  Transmission Date: 20100525
  Serious: Yes (Hospitalization)
  Sender: FDA-Public Use
  Company Number: US-BRISTOL-MYERS SQUIBB COMPANY-14779920

PATIENT
  Age: 15 Year
  Sex: Male

DRUGS (1)
  1. ABILIFY [Suspect]
     Dosage: DOSE TAPERED TO 7.5 MG,5 MG,2 MG AND THEN DISCONTINUED

REACTIONS (3)
  - DRUG INEFFECTIVE [None]
  - MUSCLE RIGIDITY [None]
  - TREMOR [None]
